FAERS Safety Report 8614287-2 (Version None)
Quarter: 2012Q3

REPORT INFORMATION
  Report Type: 
  Country: None (occurrence: None)
  Receive Date: 20120813
  Receipt Date: 20120813
  Transmission Date: 20120928
  Serious: Yes (Death)
  Sender: FDA-Public Use
  Company Number: None

PATIENT
  Age: 82 Year
  Sex: Male

DRUGS (1)
  1. REVLIMID [Suspect]
     Indication: MYELODYSPLASTIC SYNDROME
     Dosage: 2.5 MG DAILY BY MOUTH
     Route: 048
     Dates: start: 20120725, end: 20120805

REACTIONS (4)
  - PANCYTOPENIA [None]
  - ANAEMIA [None]
  - ASTHENIA [None]
  - DYSPNOEA [None]
